FAERS Safety Report 12306828 (Version 2)
Quarter: 2016Q2

REPORT INFORMATION
  Report Type: Spontaneous
  Country: IT (occurrence: IT)
  Receive Date: 20160426
  Receipt Date: 20160503
  Transmission Date: 20160815
  Serious: Yes (Hospitalization)
  Sender: FDA-Public Use
  Company Number: IT-SA-2016SA080645

PATIENT
  Age: 45 Year
  Sex: Male
  Weight: 58 kg

DRUGS (13)
  1. ANTRA [Suspect]
     Active Substance: OMEPRAZOLE
     Route: 048
     Dates: start: 20160329, end: 20160329
  2. CLOPIDOGREL BISULFATE. [Suspect]
     Active Substance: CLOPIDOGREL BISULFATE
     Route: 048
     Dates: start: 20160329, end: 20160412
  3. SELOKEN [Suspect]
     Active Substance: METOPROLOL
     Indication: ACUTE MYOCARDIAL INFARCTION
     Route: 048
  4. CARDIOASPIRIN [Suspect]
     Active Substance: ASPIRIN
     Route: 048
     Dates: start: 20160329, end: 20160412
  5. TRIATEC [Suspect]
     Active Substance: RAMIPRIL
     Route: 048
  6. CARDIOASPIRIN [Suspect]
     Active Substance: ASPIRIN
     Route: 048
  7. TORVAST [Suspect]
     Active Substance: ATORVASTATIN
     Route: 048
  8. SELOKEN [Suspect]
     Active Substance: METOPROLOL
     Indication: ACUTE MYOCARDIAL INFARCTION
     Route: 048
     Dates: start: 20160329, end: 20160412
  9. AGGRASTAT [Suspect]
     Active Substance: TIROFIBAN HYDROCHLORIDE
     Route: 065
  10. MESALAZINE [Concomitant]
     Active Substance: MESALAMINE
     Route: 048
     Dates: end: 20160329
  11. MESALAZINE [Concomitant]
     Active Substance: MESALAMINE
     Route: 048
     Dates: start: 20160407
  12. CLEXANE [Suspect]
     Active Substance: ENOXAPARIN SODIUM
     Route: 058
     Dates: start: 20160329, end: 20160412
  13. PANTORC [Suspect]
     Active Substance: PANTOPRAZOLE SODIUM
     Route: 048
     Dates: start: 20160330, end: 20160412

REACTIONS (3)
  - Diarrhoea [Recovering/Resolving]
  - Colitis ulcerative [Recovering/Resolving]
  - Anaemia [Recovering/Resolving]

NARRATIVE: CASE EVENT DATE: 20160330
